FAERS Safety Report 13568584 (Version 4)
Quarter: 2017Q4

REPORT INFORMATION
  Report Type: Spontaneous
  Country: CA (occurrence: CA)
  Receive Date: 20170522
  Receipt Date: 20171113
  Transmission Date: 20180320
  Serious: Yes (Other)
  Sender: FDA-Public Use
  Company Number: CA-CELLTRION INC.-2017CA006409

PATIENT

DRUGS (4)
  1. CIMZIA [Suspect]
     Active Substance: CERTOLIZUMAB PEGOL
     Dosage: UNK
     Dates: start: 201705
  2. MELOXICAM. [Concomitant]
     Active Substance: MELOXICAM
     Dosage: 150 MG, 1X/DAY
     Route: 048
  3. INFLECTRA [Suspect]
     Active Substance: INFLIXIMAB-DYYB
     Indication: RHEUMATOID ARTHRITIS
     Dosage: 400 MG, Q 0, 2, 6,WEEKS, THEN EVERY 6WEEKS
     Route: 042
     Dates: start: 20170523, end: 20170928
  4. IMURAN [Concomitant]
     Active Substance: AZATHIOPRINE
     Dosage: 150 MG, 1X/DAY
     Route: 048

REACTIONS (5)
  - Drug effect decreased [Unknown]
  - Joint stiffness [Not Recovered/Not Resolved]
  - Arthralgia [Recovering/Resolving]
  - Gait inability [Unknown]
  - Joint effusion [Recovering/Resolving]

NARRATIVE: CASE EVENT DATE: 201707
